FAERS Safety Report 8964622 (Version 2)
Quarter: 2013Q4

REPORT INFORMATION
  Report Type: Spontaneous
  Country: AT (occurrence: AT)
  Receive Date: 20121214
  Receipt Date: 20131126
  Transmission Date: 20140711
  Serious: Yes (Other)
  Sender: FDA-Public Use
  Company Number: AT-009507513-1106AUT00003

PATIENT
  Age: 18 Year
  Sex: Female
  Weight: 55 kg

DRUGS (3)
  1. SINGULAIR [Suspect]
     Indication: ASTHMA
     Dosage: 10 MG, QD
     Route: 048
     Dates: start: 20110412, end: 20110430
  2. AERIUS [Suspect]
     Indication: ASTHMA
     Dosage: 5 MG, QD
     Route: 048
     Dates: start: 20110412
  3. FLIXOTIDE [Suspect]
     Indication: ASTHMA
     Route: 065
     Dates: start: 20110412

REACTIONS (1)
  - Photosensitivity reaction [Recovered/Resolved]
